FAERS Safety Report 19485582 (Version 1)
Quarter: 2021Q3

REPORT INFORMATION
  Report Type: Spontaneous
  Country: IN (occurrence: IN)
  Receive Date: 20210702
  Receipt Date: 20210702
  Transmission Date: 20211014
  Serious: Yes (Other)
  Sender: FDA-Public Use
  Company Number: IN-PFIZER INC-2021639953

PATIENT
  Age: 59 Year
  Sex: Male

DRUGS (1)
  1. SUNITINIB MALATE. [Suspect]
     Active Substance: SUNITINIB MALATE
     Indication: METASTATIC RENAL CELL CARCINOMA
     Dosage: 37.5 MG, 1X/DAY (3 WEEKLY CYCLES, 14 DAYS ON, AND 7 DAYS OFF REGIMEN)

REACTIONS (1)
  - Hand-foot-genital syndrome [Recovered/Resolved]
